FAERS Safety Report 10600234 (Version 1)
Quarter: 2014Q4

REPORT INFORMATION
  Report Type: Spontaneous
  Country: US (occurrence: US)
  Receive Date: 20141122
  Receipt Date: 20141122
  Transmission Date: 20150529
  Serious: No
  Sender: FDA-Public Use
  Company Number: US-ASTRAZENECA-2014SE88368

PATIENT
  Sex: Female

DRUGS (1)
  1. NEXIUM 24HR [Suspect]
     Active Substance: ESOMEPRAZOLE MAGNESIUM
     Dosage: UNKNOWN, DAILY
     Route: 048
     Dates: start: 20141111, end: 20141115

REACTIONS (6)
  - Erythema [Unknown]
  - Musculoskeletal stiffness [Unknown]
  - Pruritus [Unknown]
  - Joint swelling [Unknown]
  - Oedema [Unknown]
  - Rash [Unknown]

NARRATIVE: CASE EVENT DATE: 201411
